FAERS Safety Report 6265172-5 (Version None)
Quarter: 2009Q3

REPORT INFORMATION
  Report Type: 
  Country: None (occurrence: None)
  Receive Date: 20090713
  Receipt Date: 20090707
  Transmission Date: 20100115
  Serious: Yes (Life-Threatening, Hospitalization, Other)
  Sender: FDA-Public Use
  Company Number: PHHY2009IN27007

PATIENT
  Age: 3 Year
  Sex: Female
  Weight: 13 kg

DRUGS (1)
  1. LIORESAL [Suspect]
     Dosage: 6 X10MG
     Route: 048

REACTIONS (9)
  - ACCIDENTAL EXPOSURE [None]
  - AREFLEXIA [None]
  - BRADYCARDIA [None]
  - COMA [None]
  - GASTRIC LAVAGE [None]
  - GLASGOW COMA SCALE ABNORMAL [None]
  - HYPOTENSION [None]
  - HYPOTONIA [None]
  - UNRESPONSIVE TO STIMULI [None]
